FAERS Safety Report 9688911 (Version 6)
Quarter: 2014Q2

REPORT INFORMATION
  Report Type: Report from Study
  Country: CA (occurrence: CA)
  Receive Date: 20131114
  Receipt Date: 20140609
  Transmission Date: 20141212
  Serious: Yes (Hospitalization, Other)
  Sender: FDA-Public Use
  Company Number: PHHY2012CA070349

PATIENT
  Sex: Female

DRUGS (4)
  1. SANDOSTATIN [Suspect]
     Indication: ANGIODYSPLASIA
     Dosage: UNK UKN, BID
     Route: 058
     Dates: start: 20120801, end: 20120830
  2. SANDOSTATIN LAR [Suspect]
     Indication: ANGIODYSPLASIA
     Dosage: 20 MG, EVERY FOUR WEEKS
     Route: 030
     Dates: start: 20120809
  3. COVERSYL//PERINDOPRIL ERBUMINE [Concomitant]
     Dosage: 8 MG
  4. COVERSYL//PERINDOPRIL ERBUMINE [Concomitant]
     Dosage: 6 MG
     Dates: start: 20131109

REACTIONS (10)
  - Pneumonia [Not Recovered/Not Resolved]
  - Hypotension [Unknown]
  - Blood pressure increased [Unknown]
  - Haemoglobin decreased [Unknown]
  - Haematochezia [Unknown]
  - Faeces discoloured [Unknown]
  - Alopecia [Unknown]
  - Injection site pain [Unknown]
  - Dizziness [Unknown]
  - Fatigue [Unknown]
